FAERS Safety Report 7547508-8 (Version None)
Quarter: 2011Q2

REPORT INFORMATION
  Report Type: 
  Country: None (occurrence: None)
  Receive Date: 20110614
  Receipt Date: 20110610
  Transmission Date: 20111010
  Serious: No
  Sender: FDA-Public Use
  Company Number: US-PFIZER INC-2011127702

PATIENT
  Sex: Male
  Weight: 80.7 kg

DRUGS (5)
  1. VENTOLIN HFA [Concomitant]
     Indication: ASTHMA
     Dosage: UNK
     Dates: start: 19910101
  2. ADVIL LIQUI-GELS [Suspect]
     Indication: INSOMNIA
     Dosage: 400 MG, DAILY
     Route: 065
     Dates: start: 20110301, end: 20110601
  3. ADVIL PM [Suspect]
     Indication: RELAXATION THERAPY
     Dosage: 400 MG, DAILY
     Route: 048
     Dates: start: 20110602, end: 20110608
  4. ADVIL PM [Suspect]
     Indication: INSOMNIA
  5. ADVIL LIQUI-GELS [Suspect]
     Indication: RELAXATION THERAPY

REACTIONS (1)
  - NERVOUSNESS [None]
